FAERS Safety Report 21639260 (Version 1)
Quarter: 2022Q4

REPORT INFORMATION
  Report Type: Spontaneous
  Country: US (occurrence: None)
  Receive Date: 20221124
  Receipt Date: 20221124
  Transmission Date: 20230113
  Serious: No
  Sender: FDA-Public Use
  Company Number: 2022A363004

PATIENT
  Sex: Female
  Weight: 58.1 kg

DRUGS (1)
  1. LYNPARZA [Suspect]
     Active Substance: OLAPARIB
     Indication: Breast cancer female
     Route: 048
     Dates: start: 20221027

REACTIONS (3)
  - Hyperhidrosis [Unknown]
  - Mood altered [Unknown]
  - Depressed mood [Unknown]
